FAERS Safety Report 9412556 (Version 4)
Quarter: 2014Q1

REPORT INFORMATION
  Report Type: Spontaneous
  Country: US (occurrence: US)
  Receive Date: 20130722
  Receipt Date: 20140124
  Transmission Date: 20141002
  Serious: Yes (Disabling)
  Sender: FDA-Public Use
  Company Number: US-MERCK-1307USA010138

PATIENT
  Sex: Male

DRUGS (2)
  1. PEGINTRON [Suspect]
     Indication: HEPATITIS C
     Dosage: UNK
     Dates: start: 200602, end: 2006
  2. REBETOL [Suspect]
     Dosage: 200 MG, BID
     Route: 048

REACTIONS (16)
  - Local swelling [Not Recovered/Not Resolved]
  - Abasia [Not Recovered/Not Resolved]
  - Pain in extremity [Not Recovered/Not Resolved]
  - Abdominal distension [Unknown]
  - Incorrect product storage [Unknown]
  - Tendon disorder [Unknown]
  - Rotator cuff syndrome [Unknown]
  - Injection site reaction [Recovered/Resolved]
  - Constipation [Recovered/Resolved]
  - Dehydration [Unknown]
  - Incorrect product storage [Unknown]
  - Burning sensation [Unknown]
  - Carpal tunnel decompression [Unknown]
  - Tendon operation [Unknown]
  - Tendon disorder [Unknown]
  - Tendon disorder [Unknown]
